FAERS Safety Report 5989012-4 (Version None)
Quarter: 2008Q4

REPORT INFORMATION
  Report Type: 
  Country: None (occurrence: None)
  Receive Date: 20081210
  Receipt Date: 20081202
  Transmission Date: 20090506
  Serious: Yes (Other)
  Sender: FDA-Public Use
  Company Number: B0454048A

PATIENT
  Age: 52 Year
  Sex: Female
  Weight: 45.4 kg

DRUGS (16)
  1. TRIZIVIR [Suspect]
     Indication: HIV INFECTION
     Route: 048
  2. COMBIVIR [Suspect]
  3. FOSAMPRENAVIR [Suspect]
     Dosage: 1400MG PER DAY
     Route: 048
     Dates: start: 20061219, end: 20061228
  4. ANTIRETROVIRAL MEDICATIONS [Suspect]
  5. REYATAZ [Suspect]
     Route: 048
     Dates: start: 20041005, end: 20061219
  6. AMPRENAVIR [Suspect]
  7. ATAZANAVIR SULFATE [Suspect]
  8. FUROSEMIDE [Concomitant]
     Dosage: 40MG PER DAY
     Route: 048
  9. RITONAVIR [Concomitant]
     Dosage: 100MG PER DAY
     Dates: start: 20031202
  10. COMBIVIR [Concomitant]
     Route: 048
     Dates: start: 20040622
  11. PRAVASTATIN [Concomitant]
     Dosage: 40MG PER DAY
     Route: 048
  12. SENNA [Concomitant]
     Route: 048
  13. METFORMIN HCL [Concomitant]
     Dosage: 1500MG PER DAY
     Route: 048
  14. GLICLAZIDE [Concomitant]
     Dosage: 160MG PER DAY
     Route: 048
  15. ZIDOVUDINE [Concomitant]
  16. PHENOXYMETHYL PENICILLIN [Concomitant]
     Dosage: 1000MG PER DAY
     Route: 048

REACTIONS (4)
  - BACK PAIN [None]
  - MALAISE [None]
  - NEPHROLITHIASIS [None]
  - RASH [None]
